FAERS Safety Report 7245548-X (Version None)
Quarter: 2011Q1

REPORT INFORMATION
  Report Type: 
  Country: None (occurrence: None)
  Receive Date: 20110126
  Receipt Date: 20110121
  Transmission Date: 20110831
  Serious: Yes (Other)
  Sender: FDA-Public Use
  Company Number: US-PFIZER INC-2011015654

PATIENT
  Sex: Female
  Weight: 72.562 kg

DRUGS (4)
  1. GEODON [Suspect]
     Indication: BIPOLAR DISORDER
     Dosage: 20 MG, 3X/DAY
     Route: 048
     Dates: start: 20000101
  2. NEURONTIN [Concomitant]
     Indication: DEPRESSION
     Dosage: UNK
  3. WELLBUTRIN [Concomitant]
     Indication: DEPRESSION
     Dosage: UNK
  4. GEODON [Suspect]
     Indication: DEPRESSION

REACTIONS (2)
  - SLEEP APNOEA SYNDROME [None]
  - EAR DISCOMFORT [None]
